FAERS Safety Report 8791674 (Version 1)
Quarter: 2012Q4

REPORT INFORMATION
  Report Type: 
  Country: US (occurrence: US)
  Receive Date: 20120918
  Receipt Date: 20120918
  Transmission Date: 20130627
  Serious: No
  Sender: FDA-Public Use
  Company Number: US-ROXANE LABORATORIES, INC.-2012-RO-01778RO

PATIENT
  Sex: Female

DRUGS (4)
  1. PREDNISONE [Suspect]
  2. AMPYRA [Suspect]
     Dosage: 20 mg
     Route: 048
     Dates: start: 201202
  3. REBIF [Concomitant]
  4. GABAPENTIN [Concomitant]

REACTIONS (3)
  - Contusion [Unknown]
  - Fall [Unknown]
  - Impaired healing [Unknown]
